FAERS Safety Report 10136000 (Version 4)
Quarter: 2014Q3

REPORT INFORMATION
  Report Type: Report from Study
  Country: US (occurrence: US)
  Receive Date: 20140429
  Receipt Date: 20140828
  Transmission Date: 20150326
  Serious: Yes (Hospitalization)
  Sender: FDA-Public Use
  Company Number: US-BIOGENIDEC-2014BI038907

PATIENT
  Age: 33 Year
  Sex: Male

DRUGS (1)
  1. TYSABRI [Suspect]
     Active Substance: NATALIZUMAB
     Indication: MULTIPLE SCLEROSIS
     Route: 042
     Dates: start: 20110831, end: 20140224

REACTIONS (10)
  - Cerebrospinal fluid leakage [Recovered/Resolved]
  - Tympanic membrane perforation [Not Recovered/Not Resolved]
  - Balance disorder [Not Recovered/Not Resolved]
  - Emotional disorder [Recovered/Resolved]
  - Road traffic accident [Recovered/Resolved]
  - Skeletal injury [Recovered/Resolved]
  - Peripheral swelling [Not Recovered/Not Resolved]
  - Deafness unilateral [Not Recovered/Not Resolved]
  - Abasia [Recovered/Resolved]
  - Visual impairment [Not Recovered/Not Resolved]

NARRATIVE: CASE EVENT DATE: 201403
